FAERS Safety Report 7607037-X (Version None)
Quarter: 2011Q3

REPORT INFORMATION
  Report Type: 
  Country: None (occurrence: None)
  Receive Date: 20110713
  Receipt Date: 20110705
  Transmission Date: 20111222
  Serious: Yes (Hospitalization)
  Sender: FDA-Public Use
  Company Number: US-JNJFOC-20110400879

PATIENT
  Sex: Female
  Weight: 58.97 kg

DRUGS (6)
  1. REMICADE [Suspect]
     Indication: RHEUMATOID ARTHRITIS
     Route: 042
     Dates: start: 20110202
  2. METHOTREXATE [Concomitant]
     Indication: RHEUMATOID ARTHRITIS
     Dosage: 2.5 MG TABLET, 8 TABLETS WEEKLY
     Route: 048
     Dates: start: 20080101
  3. REMICADE [Suspect]
     Route: 042
     Dates: start: 20101101, end: 20110209
  4. PLAQUENIL [Concomitant]
     Indication: RHEUMATOID ARTHRITIS
     Route: 048
     Dates: start: 20030101
  5. REMICADE [Suspect]
     Route: 042
     Dates: start: 20091201, end: 20100701
  6. PAXIL [Concomitant]
     Indication: ANXIETY
     Route: 048
     Dates: start: 20010101

REACTIONS (15)
  - INFLUENZA LIKE ILLNESS [None]
  - PAIN [None]
  - GASTRIC DISORDER [None]
  - DYSPNOEA [None]
  - HERPES VIRUS INFECTION [None]
  - THROAT TIGHTNESS [None]
  - BACK PAIN [None]
  - ABASIA [None]
  - PRURITUS [None]
  - MYOCARDIAL INFARCTION [None]
  - BLOOD CHOLESTEROL INCREASED [None]
  - VITAMIN D DEFICIENCY [None]
  - TOOTH DISORDER [None]
  - INFUSION RELATED REACTION [None]
  - URTICARIA [None]
